FAERS Safety Report 7471792-2 (Version None)
Quarter: 2011Q2

REPORT INFORMATION
  Report Type: 
  Country: None (occurrence: None)
  Receive Date: 20110511
  Receipt Date: 20100511
  Transmission Date: 20111010
  Serious: No
  Sender: FDA-Public Use
  Company Number: A0859150A

PATIENT
  Age: 49 Year
  Sex: Female

DRUGS (11)
  1. HERCEPTIN [Concomitant]
  2. IMODIUM [Concomitant]
  3. SIMVASTATIN [Concomitant]
  4. AMBIEN [Concomitant]
  5. SPIRONOLACTONE [Concomitant]
  6. EFFEXOR [Concomitant]
  7. ACTOS [Concomitant]
  8. CALTRATE [Concomitant]
  9. TYKERB [Suspect]
     Indication: BREAST CANCER
     Dosage: 1250MG PER DAY
     Route: 048
     Dates: start: 20100404
  10. VITAMIN D [Concomitant]
  11. SYNTHROID [Concomitant]

REACTIONS (2)
  - FATIGUE [None]
  - DIARRHOEA [None]
